FAERS Safety Report 12405381 (Version 1)
Quarter: 2016Q2

REPORT INFORMATION
  Report Type: Spontaneous
  Country: US (occurrence: None)
  Receive Date: 20160525
  Receipt Date: 20160525
  Transmission Date: 20160815
  Serious: Yes (Life-Threatening, Disabling, Other)
  Sender: FDA-Public Use
  Company Number: None

PATIENT
  Sex: Male
  Weight: 124.74 kg

DRUGS (3)
  1. SODIUM CHLORIDE. [Suspect]
     Active Substance: SODIUM CHLORIDE
  2. GARLIC. [Concomitant]
     Active Substance: GARLIC
  3. IN VEGA [Concomitant]

REACTIONS (3)
  - Abasia [None]
  - Activities of daily living impaired [None]
  - Pain in extremity [None]
